FAERS Safety Report 25498924 (Version 1)
Quarter: 2025Q3

REPORT INFORMATION
  Report Type: Spontaneous
  Country: EU (occurrence: EU)
  Receive Date: 20250701
  Receipt Date: 20250701
  Transmission Date: 20251020
  Serious: Yes (Other)
  Sender: SANDOZ
  Company Number: EU-MYLANLABS-2023M1039793

PATIENT
  Age: 17 Year

DRUGS (8)
  1. ABATACEPT [Suspect]
     Active Substance: ABATACEPT
     Indication: Immunomodulatory therapy
     Dosage: 10 MILLIGRAM/KILOGRAM, BIWEEKLY
     Route: 042
  2. ATG-FRESENIUS [Suspect]
     Active Substance: LAPINE T-LYMPHOCYTE IMMUNE GLOBULIN
     Indication: Immunoglobulin therapy
     Route: 065
  3. CYCLOSPORINE [Suspect]
     Active Substance: CYCLOSPORINE
     Indication: Prophylaxis against graft versus host disease
     Route: 065
  4. FLUDARABINE [Suspect]
     Active Substance: FLUDARABINE PHOSPHATE
     Indication: Bone marrow conditioning regimen
     Route: 065
  5. METHOTREXATE [Suspect]
     Active Substance: METHOTREXATE
     Indication: Prophylaxis against graft versus host disease
     Route: 065
  6. RITUXIMAB [Suspect]
     Active Substance: RITUXIMAB
     Indication: Immunomodulatory therapy
     Route: 065
  7. THIOTEPA [Suspect]
     Active Substance: THIOTEPA
     Indication: Bone marrow conditioning regimen
     Route: 065
  8. TREOSULFAN [Suspect]
     Active Substance: TREOSULFAN
     Indication: Bone marrow conditioning regimen
     Route: 065

REACTIONS (9)
  - Cytomegalovirus infection [Recovered/Resolved]
  - Parvovirus B19 infection [Recovered/Resolved]
  - Candida infection [Recovered/Resolved]
  - Human herpesvirus 6 infection [Recovered/Resolved]
  - Pharyngeal ulceration [Recovered/Resolved]
  - Drug ineffective [Unknown]
  - Cytomegalovirus colitis [Recovered/Resolved]
  - Gastritis [Unknown]
  - Off label use [Unknown]
